FAERS Safety Report 8010576-3 (Version None)
Quarter: 2011Q4

REPORT INFORMATION
  Report Type: 
  Country: None (occurrence: None)
  Receive Date: 20111228
  Receipt Date: 20111215
  Transmission Date: 20120403
  Serious: Yes (Hospitalization, Other)
  Sender: FDA-Public Use
  Company Number: PHHY2010US41696

PATIENT
  Sex: Male
  Weight: 118 kg

DRUGS (13)
  1. TASIGNA [Suspect]
     Dosage: 400 MG, EOD
     Dates: start: 20091201
  2. LASIX [Concomitant]
     Indication: OEDEMA PERIPHERAL
     Dosage: UNK
  3. TOPROL-XL [Concomitant]
     Dosage: UNK
  4. SPIRONOLACTONE [Concomitant]
  5. TASIGNA [Suspect]
     Dosage: 200 MG, Q12H
     Route: 048
  6. DIOVAN [Concomitant]
     Dosage: UNK
  7. MULTI-VITAMIN [Concomitant]
     Indication: SUPPLEMENTATION THERAPY
     Dosage: UNK
  8. WARFARIN [Concomitant]
     Dosage: UNK
  9. TASIGNA [Suspect]
     Indication: MYELOID LEUKAEMIA
     Dosage: 400 MG, Q12H
     Route: 048
     Dates: start: 20090412
  10. ASPIRIN [Concomitant]
     Dosage: UNK
  11. ALLOPURINOL [Concomitant]
     Dosage: UNK
  12. ALDACTONE [Concomitant]
     Dosage: UNK
  13. KLOR-CON [Concomitant]
     Indication: BLOOD POTASSIUM DECREASED
     Dosage: UNK

REACTIONS (5)
  - ANAEMIA [None]
  - DYSPNOEA [None]
  - THROMBOCYTOPENIA [None]
  - PULMONARY HYPERTENSION [None]
  - RIGHT VENTRICULAR FAILURE [None]
